FAERS Safety Report 9352810 (Version 1)
Quarter: 2013Q2

REPORT INFORMATION
  Report Type: Spontaneous
  Country: US (occurrence: None)
  Receive Date: 20130614
  Receipt Date: 20130614
  Transmission Date: 20140414
  Serious: Yes (Other)
  Sender: FDA-Public Use
  Company Number: None

PATIENT
  Age: 31 Year
  Sex: Male
  Weight: 77.11 kg

DRUGS (1)
  1. LEVOFLOXACIN [Suspect]
     Indication: SINUSITIS
     Dosage: 500MG  1 DAILY
     Dates: start: 20130501, end: 20130510

REACTIONS (10)
  - Arthralgia [None]
  - Discomfort [None]
  - Tendonitis [None]
  - Abnormal dreams [None]
  - Insomnia [None]
  - Chills [None]
  - Paraesthesia [None]
  - Anxiety [None]
  - Thinking abnormal [None]
  - Nausea [None]
